FAERS Safety Report 24432388 (Version 1)
Quarter: 2024Q4

REPORT INFORMATION
  Report Type: Report from Study
  Country: AR (occurrence: AR)
  Receive Date: 20241014
  Receipt Date: 20241014
  Transmission Date: 20250114
  Serious: Yes (Hospitalization, Other)
  Sender: ABBVIE
  Company Number: AR-ABBVIE-5959879

PATIENT
  Age: 76 Year
  Sex: Male

DRUGS (1)
  1. SKYRIZI [Suspect]
     Active Substance: RISANKIZUMAB-RZAA
     Indication: Psoriasis
     Dosage: FORM STRENGTH: 150 MILLIGRAM
     Route: 058
     Dates: start: 20181007

REACTIONS (3)
  - Aortic valve incompetence [Recovered/Resolved]
  - Pyrexia [Recovering/Resolving]
  - Bacterial infection [Recovering/Resolving]

NARRATIVE: CASE EVENT DATE: 20220523
